FAERS Safety Report 10627350 (Version 2)
Quarter: 2015Q1

REPORT INFORMATION
  Report Type: Report from Study
  Country: NL (occurrence: NL)
  Receive Date: 20141204
  Receipt Date: 20150204
  Transmission Date: 20150720
  Serious: Yes (Life-Threatening, Hospitalization, Other)
  Sender: FDA-Public Use
  Company Number: NL-009507513-1412NLD001269

PATIENT
  Age: 8 Year
  Sex: Female

DRUGS (4)
  1. DEXAMETASON [Concomitant]
     Active Substance: DEXAMETHASONE
     Dosage: 3 MG, UNK
     Dates: start: 20141015, end: 20141015
  2. TEMOZOLOMIDE. [Suspect]
     Active Substance: TEMOZOLOMIDE
     Dosage: 75 MG/M2, UNK
     Route: 048
     Dates: start: 20141022
  3. TEMOZOLOMIDE. [Suspect]
     Active Substance: TEMOZOLOMIDE
     Indication: MALIGNANT GLIOMA
     Dosage: 75 MG/M2, QD
     Route: 048
     Dates: start: 20141013, end: 20141015
  4. ONDANSETRON [Concomitant]
     Active Substance: ONDANSETRON
     Dosage: 8 MG, UNK
     Dates: start: 20141013, end: 20141016

REACTIONS (1)
  - Hydrocephalus [Recovered/Resolved with Sequelae]

NARRATIVE: CASE EVENT DATE: 20141015
